FAERS Safety Report 23395284 (Version 1)
Quarter: 2024Q1

REPORT INFORMATION
  Report Type: Spontaneous
  Country: US (occurrence: US)
  Receive Date: 20240112
  Receipt Date: 20240112
  Transmission Date: 20240409
  Serious: Yes (Other)
  Sender: FDA-Public Use
  Company Number: US-VIIV HEALTHCARE LIMITED-US2024AMR003361

PATIENT
  Sex: Male

DRUGS (2)
  1. RILPIVIRINE [Suspect]
     Active Substance: RILPIVIRINE
     Indication: HIV infection
     Dosage: UNK UNK, Q2M (600/900 MG, EVERY 56 DAYS
     Route: 042
  2. CABOTEGRAVIR [Suspect]
     Active Substance: CABOTEGRAVIR
     Indication: HIV infection
     Dosage: UNK UNK, Q2M (600/900 MG, EVERY 56 DAYS
     Route: 042

REACTIONS (3)
  - Tooth extraction [Not Recovered/Not Resolved]
  - Myalgia [Not Recovered/Not Resolved]
  - Incorrect route of product administration [Unknown]
